FAERS Safety Report 22312654 (Version 2)
Quarter: 2025Q3

REPORT INFORMATION
  Report Type: Spontaneous
  Country: US (occurrence: US)
  Receive Date: 20230512
  Receipt Date: 20250702
  Transmission Date: 20251020
  Serious: No
  Sender: TEVA
  Company Number: US-TEVA-2023-US-2881447

PATIENT
  Age: 37 Year
  Sex: Female

DRUGS (1)
  1. ALPRAZOLAM [Suspect]
     Active Substance: ALPRAZOLAM
     Indication: Panic disorder
     Route: 065
     Dates: start: 20230418, end: 202304

REACTIONS (3)
  - Agitation [Unknown]
  - Drug ineffective [Unknown]
  - Flushing [Unknown]

NARRATIVE: CASE EVENT DATE: 20230418
